FAERS Safety Report 8504135-3 (Version None)
Quarter: 2012Q3

REPORT INFORMATION
  Report Type: 
  Country: None (occurrence: None)
  Receive Date: 20120711
  Receipt Date: 20120629
  Transmission Date: 20120928
  Serious: Yes (Hospitalization)
  Sender: FDA-Public Use
  Company Number: GB-009507513-1206USA05584

PATIENT

DRUGS (4)
  1. ISENTRESS [Suspect]
     Indication: HIV INFECTION
     Dosage: 400 MG, BID
     Route: 048
     Dates: start: 20120228, end: 20120606
  2. ABACAVIR SULFATE [Concomitant]
     Dates: start: 20120430, end: 20120607
  3. KALETRA [Concomitant]
     Dates: start: 20120430, end: 20120607
  4. ISENTRESS [Suspect]
     Dosage: 400 MG, BID
     Route: 048
     Dates: start: 20120611

REACTIONS (3)
  - PANCREATITIS ACUTE [None]
  - HEPATITIS [None]
  - VOMITING [None]
